FAERS Safety Report 5058269-9 (Version None)
Quarter: 2006Q3

REPORT INFORMATION
  Report Type: 
  Country: None (occurrence: None)
  Receive Date: 20060721
  Receipt Date: 20060608
  Transmission Date: 20061208
  Serious: No
  Sender: FDA-Public Use
  Company Number: 2006UW12170

PATIENT
  Age: 64 Year
  Sex: Male

DRUGS (2)
  1. ATACAND HCT [Suspect]
     Dosage: CANDESARTAN CILEXETIL  32 MG + HYDROCHLOROTHIAZIDE 12.5 MG
     Route: 048
  2. CATAPRES [Suspect]
     Dosage: 0.1/24 HR

REACTIONS (2)
  - DRUG ADMINISTRATION ERROR [None]
  - PHARMACEUTICAL PRODUCT COMPLAINT [None]
